FAERS Safety Report 21902189 (Version 1)
Quarter: 2023Q1

REPORT INFORMATION
  Report Type: Spontaneous
  Country: CO (occurrence: CO)
  Receive Date: 20230124
  Receipt Date: 20230124
  Transmission Date: 20230417
  Serious: Yes (Death, Other)
  Sender: FDA-Public Use
  Company Number: CO-COLLEGIUM PHARMACEUTICAL, INC.-20230100041

PATIENT

DRUGS (16)
  1. NUCYNTA [Suspect]
     Active Substance: TAPENTADOL HYDROCHLORIDE
     Indication: Product used for unknown indication
     Dosage: 100 MILLIGRAM, EVERY 12 HRS
     Route: 065
     Dates: start: 201611
  2. NUCYNTA [Suspect]
     Active Substance: TAPENTADOL HYDROCHLORIDE
     Dosage: 1 DOSAGE FORM, Q12H
     Route: 065
     Dates: start: 201701
  3. NUCYNTA [Suspect]
     Active Substance: TAPENTADOL HYDROCHLORIDE
     Dosage: 1 DOSAGE FORM, Q12H
     Route: 065
     Dates: start: 201705
  4. NUCYNTA [Suspect]
     Active Substance: TAPENTADOL HYDROCHLORIDE
     Dosage: 1 DOSAGE FORM, Q12H
     Route: 065
     Dates: start: 201709
  5. NUCYNTA [Suspect]
     Active Substance: TAPENTADOL HYDROCHLORIDE
     Dosage: 1 DOSAGE FORM, Q12H
     Route: 065
     Dates: start: 201801
  6. NUCYNTA [Suspect]
     Active Substance: TAPENTADOL HYDROCHLORIDE
     Dosage: 1 DOSAGE FORM, Q12H
     Route: 065
     Dates: start: 201806
  7. NUCYNTA [Suspect]
     Active Substance: TAPENTADOL HYDROCHLORIDE
     Dosage: UNK
  8. TRAMADOL HYDROCHLORIDE [Suspect]
     Active Substance: TRAMADOL HYDROCHLORIDE
     Indication: Pain management
     Dosage: 150 MILLIGRAM, EVERY 6 HRS
     Route: 065
  9. LIDOCAINE [Concomitant]
     Active Substance: LIDOCAINE
     Indication: Product used for unknown indication
     Dosage: UNK
     Dates: start: 201705
  10. LIDOCAINE [Concomitant]
     Active Substance: LIDOCAINE
     Dosage: UNK
     Dates: start: 201801
  11. LIDOCAINE [Concomitant]
     Active Substance: LIDOCAINE
     Dosage: UNK
     Dates: start: 201806
  12. TERIPARATIDE [Concomitant]
     Active Substance: TERIPARATIDE
     Indication: Prophylaxis
     Dosage: UNK
     Dates: start: 201701
  13. TERIPARATIDE [Concomitant]
     Active Substance: TERIPARATIDE
     Dosage: UNK
     Dates: start: 201705
  14. TERIPARATIDE [Concomitant]
     Active Substance: TERIPARATIDE
     Dosage: UNK
     Dates: start: 201709
  15. TERIPARATIDE [Concomitant]
     Active Substance: TERIPARATIDE
     Dosage: UNK
     Dates: start: 201801
  16. TERIPARATIDE [Concomitant]
     Active Substance: TERIPARATIDE
     Dosage: UNK
     Dates: start: 201806

REACTIONS (9)
  - Death [Fatal]
  - Renal failure [Unknown]
  - Rib fracture [Unknown]
  - Headache [Unknown]
  - Overdose [Unknown]
  - Insomnia [Unknown]
  - Dry mouth [Unknown]
  - Nervousness [Unknown]
  - Tremor [Unknown]

NARRATIVE: CASE EVENT DATE: 20170501
